FAERS Safety Report 4562912-8 (Version None)
Quarter: 2005Q1

REPORT INFORMATION
  Report Type: 
  Country: None (occurrence: None)
  Receive Date: 20050121
  Receipt Date: 20050104
  Transmission Date: 20050727
  Serious: Yes (Other)
  Sender: FDA-Public Use
  Company Number: FR_040804652

PATIENT
  Age: 71 Year
  Sex: Female
  Weight: 78.9259 kg

DRUGS (7)
  1. PROZAC [Suspect]
     Indication: TOBACCO USER
     Dosage: 20MG/1 DAY
     Dates: start: 20040515, end: 20040823
  2. SINGULAIR (MONTELEUKAST) [Concomitant]
  3. SYMBICORT [Concomitant]
  4. ISOPTIN [Concomitant]
  5. LASILIX (FUROSEMIDE) [Concomitant]
  6. ZOCOR [Concomitant]
  7. OXYGEN [Concomitant]

REACTIONS (4)
  - CENTRAL-ALVEOLAR HYPOVENTILATION [None]
  - CHRONIC OBSTRUCTIVE PULMONARY DISEASE [None]
  - CONDITION AGGRAVATED [None]
  - HYPERCAPNIA [None]
